FAERS Safety Report 8832061 (Version 2)
Quarter: 2012Q4

REPORT INFORMATION
  Report Type: Report from Study
  Country: US (occurrence: US)
  Receive Date: 20121009
  Receipt Date: 20121019
  Transmission Date: 20130627
  Serious: Yes (Other)
  Sender: FDA-Public Use
  Company Number: US-ROCHE-1138706

PATIENT
  Age: 65 Year
  Sex: Female
  Weight: 56 kg

DRUGS (3)
  1. BEVACIZUMAB [Suspect]
     Indication: NON-SMALL CELL LUNG CANCER
     Dosage: Dose delayed for 7 days, TACB1, Arm B - Regimen 1: Cycle = 3 weeks, last dose prior to sae: 02/May/2
     Route: 042
     Dates: start: 20120227
  2. VINORELBINE [Suspect]
     Indication: NON-SMALL CELL LUNG CANCER
     Dosage: IVP, last dose prior to sae: 09/May/2012
     Route: 042
     Dates: start: 20120227
  3. CISPLATIN [Suspect]
     Indication: NON-SMALL CELL LUNG CANCER
     Dosage: last dose prior to sae: 09/May/2012
     Route: 042
     Dates: start: 20120227

REACTIONS (1)
  - Hypomagnesaemia [Recovered/Resolved]
